FAERS Safety Report 21272723 (Version 1)
Quarter: 2022Q3

REPORT INFORMATION
  Report Type: Spontaneous
  Country: CA (occurrence: CA)
  Receive Date: 20220831
  Receipt Date: 20220831
  Transmission Date: 20221026
  Serious: Yes (Hospitalization)
  Sender: FDA-Public Use
  Company Number: CA-EXELIXIS-CABO-22055347

PATIENT
  Sex: Male

DRUGS (4)
  1. CABOMETYX [Suspect]
     Active Substance: CABOZANTINIB S-MALATE
     Indication: Papillary thyroid cancer
     Dosage: UNK
     Dates: start: 202203
  2. TAXOL [Suspect]
     Active Substance: PACLITAXEL
     Indication: Papillary thyroid cancer
     Dosage: UNK, Q WEEKLY
  3. ENCORAFENIB [Suspect]
     Active Substance: ENCORAFENIB
     Indication: Papillary thyroid cancer
     Dosage: 450 MG, QD
     Route: 048
  4. BINIMETINIB [Suspect]
     Active Substance: BINIMETINIB
     Indication: Papillary thyroid cancer
     Dosage: UNK

REACTIONS (4)
  - Lung opacity [Unknown]
  - Metastases to lung [Not Recovered/Not Resolved]
  - Pneumothorax [Unknown]
  - Off label use [Unknown]

NARRATIVE: CASE EVENT DATE: 20220701
